FAERS Safety Report 5845733-5 (Version None)
Quarter: 2008Q3

REPORT INFORMATION
  Report Type: 
  Country: None (occurrence: None)
  Receive Date: 20080814
  Receipt Date: 20080806
  Transmission Date: 20090109
  Serious: Yes (Other)
  Sender: FDA-Public Use
  Company Number: PHEH2006US03646

PATIENT
  Sex: Female
  Weight: 58.957 kg

DRUGS (14)
  1. AREDIA [Suspect]
     Dosage: MONTHLY
  2. ZOMETA [Suspect]
     Indication: METASTASES TO BONE
     Dosage: MONTHLY
     Dates: end: 20051001
  3. FASLODEX [Concomitant]
     Dosage: UNK, QMO
  4. TRIAMTERENE [Concomitant]
     Dosage: UNK, QD
  5. POTASSIUM CHLORIDE [Concomitant]
     Dosage: 10 MEQ, BID
  6. VITAMIN E [Concomitant]
     Dosage: 400 IU, QD
  7. VITAMIN B-12 [Concomitant]
     Dosage: 500 MG, QD
  8. TYLENOL W/ CODEINE NO. 3 [Concomitant]
  9. DEXAMETHASONE TAB [Concomitant]
  10. ANTINEOPLASTIC AGENTS [Concomitant]
     Dosage: UNK, UNK
     Dates: end: 20050201
  11. ANTINEOPLASTIC AGENTS [Concomitant]
     Dosage: UNK
     Dates: start: 20060301
  12. RADIATION [Concomitant]
     Dates: end: 20041001
  13. FEMARA [Concomitant]
     Dosage: 2.5 MG, UNK
  14. DYAZIDE [Concomitant]

REACTIONS (13)
  - ANXIETY [None]
  - BACTERIAL INFECTION [None]
  - BONE DEBRIDEMENT [None]
  - BONE DISORDER [None]
  - DECREASED INTEREST [None]
  - MALIGNANT NEOPLASM PROGRESSION [None]
  - ORAL PAIN [None]
  - OSTEONECROSIS [None]
  - PAIN [None]
  - PRIMARY SEQUESTRUM [None]
  - SWOLLEN TONGUE [None]
  - TONGUE DISORDER [None]
  - TOOTH EXTRACTION [None]
